FAERS Safety Report 15546468 (Version 2)
Quarter: 2018Q4

REPORT INFORMATION
  Report Type: Spontaneous
  Country: GB (occurrence: GB)
  Receive Date: 20181024
  Receipt Date: 20181031
  Transmission Date: 20190205
  Serious: Yes (Hospitalization, Other)
  Sender: FDA-Public Use
  Company Number: GB-PFIZER INC-2018430025

PATIENT
  Sex: Female

DRUGS (1)
  1. VENLAFAXINE HCL [Suspect]
     Active Substance: VENLAFAXINE HYDROCHLORIDE
     Dosage: UNK (HIGH DOSE)

REACTIONS (4)
  - Psychotic disorder [Recovering/Resolving]
  - Incorrect dose administered [Recovered/Resolved]
  - Paranoia [Recovering/Resolving]
  - Mania [Recovering/Resolving]
